FAERS Safety Report 12527601 (Version 4)
Quarter: 2018Q2

REPORT INFORMATION
  Report Type: Spontaneous
  Country: CA (occurrence: CA)
  Receive Date: 20160705
  Receipt Date: 20180523
  Transmission Date: 20180711
  Serious: Yes (Other)
  Sender: FDA-Public Use
  Company Number: CA-ROCHE-1786214

PATIENT
  Age: 50 Year
  Sex: Male

DRUGS (5)
  1. ACCUTANE [Suspect]
     Active Substance: ISOTRETINOIN
     Indication: ROSACEA
     Dosage: LOW DOSE, QD
     Route: 065
  2. XOLAIR [Suspect]
     Active Substance: OMALIZUMAB
     Dosage: DOSE REDUCTION
     Route: 058
  3. ACCUTANE [Suspect]
     Active Substance: ISOTRETINOIN
     Indication: ACNE
  4. XOLAIR [Suspect]
     Active Substance: OMALIZUMAB
     Indication: ASTHMA
     Route: 058
     Dates: start: 20150326
  5. ACCUTANE [Suspect]
     Active Substance: ISOTRETINOIN
     Indication: ERYTHEMA

REACTIONS (11)
  - Rosacea [Not Recovered/Not Resolved]
  - Urticaria [Not Recovered/Not Resolved]
  - Acne [Not Recovered/Not Resolved]
  - Dry skin [Not Recovered/Not Resolved]
  - Rash pustular [Not Recovered/Not Resolved]
  - Melanocytic naevus [Not Recovered/Not Resolved]
  - Papule [Not Recovered/Not Resolved]
  - Dermoid cyst [Not Recovered/Not Resolved]
  - Erythema [Not Recovered/Not Resolved]
  - Nasal polyps [Not Recovered/Not Resolved]
  - Skin exfoliation [Not Recovered/Not Resolved]

NARRATIVE: CASE EVENT DATE: 201506
